FAERS Safety Report 22227196 (Version 1)
Quarter: 2023Q2

REPORT INFORMATION
  Report Type: Spontaneous
  Country: AU (occurrence: AU)
  Receive Date: 20230419
  Receipt Date: 20230419
  Transmission Date: 20230721
  Serious: Yes (Other)
  Sender: FDA-Public Use
  Company Number: AU-ALKEM LABORATORIES LIMITED-AU-ALKEM-2023-04087

PATIENT
  Age: 12 Year
  Sex: Female

DRUGS (3)
  1. IBUPROFEN [Suspect]
     Active Substance: IBUPROFEN
     Indication: Product used for unknown indication
     Dosage: UNK
     Route: 065
  2. ACETAMINOPHEN [Suspect]
     Active Substance: ACETAMINOPHEN
     Indication: Product used for unknown indication
     Dosage: UNK
     Route: 065
  3. AMOXICILLIN [Suspect]
     Active Substance: AMOXICILLIN
     Indication: Product used for unknown indication
     Dosage: UNK
     Route: 065

REACTIONS (25)
  - Acute hepatic failure [Unknown]
  - Ascites [Unknown]
  - Cholecystitis [Unknown]
  - Encephalopathy [Unknown]
  - Myocarditis [Unknown]
  - Renal impairment [Unknown]
  - Rhythm idioventricular [Unknown]
  - Vasoplegia syndrome [Unknown]
  - Ventricular tachycardia [Unknown]
  - Abdominal pain [Unknown]
  - Blood bilirubin increased [Unknown]
  - Coagulopathy [Unknown]
  - Hyperlactacidaemia [Unknown]
  - Hypertension [Unknown]
  - Hypoglycaemia [Unknown]
  - Hypotension [Unknown]
  - International normalised ratio increased [Unknown]
  - Myopathy [Unknown]
  - Myositis [Unknown]
  - Peripheral ischaemia [Unknown]
  - Respiratory disorder [Unknown]
  - Toxicity to various agents [Unknown]
  - Transaminases increased [Unknown]
  - Troponin increased [Unknown]
  - Ventricular dysfunction [Unknown]
